FAERS Safety Report 8829515 (Version 1)
Quarter: 2012Q4

REPORT INFORMATION
  Report Type: Spontaneous
  Country: US (occurrence: None)
  Receive Date: 20121005
  Receipt Date: 20121005
  Transmission Date: 20130627
  Serious: Yes (Death, Life-Threatening, Hospitalization, Disabling)
  Sender: FDA-Public Use
  Company Number: None

PATIENT
  Age: 67 Year
  Sex: Male
  Weight: 65.77 kg

DRUGS (1)
  1. EFFIENT [Suspect]
     Indication: CORONARY STENT PLACEMENT
     Route: 048
     Dates: start: 20111212, end: 20120825

REACTIONS (1)
  - Thrombotic thrombocytopenic purpura [None]
